FAERS Safety Report 18130648 (Version 3)
Quarter: 2020Q3

REPORT INFORMATION
  Report Type: Spontaneous
  Country: US (occurrence: US)
  Receive Date: 20200810
  Receipt Date: 20200921
  Transmission Date: 20201103
  Serious: No
  Sender: FDA-Public Use
  Company Number: US-GILEAD-2020-0489283

PATIENT
  Age: 53 Year
  Sex: Male

DRUGS (1)
  1. REMDESIVIR. [Suspect]
     Active Substance: REMDESIVIR
     Indication: COVID-19
     Dosage: UNK
     Route: 065
     Dates: start: 20200803

REACTIONS (3)
  - Product label issue [Unknown]
  - Product preparation error [Unknown]
  - Product closure issue [Unknown]

NARRATIVE: CASE EVENT DATE: 20200805
